FAERS Safety Report 13358880 (Version 2)
Quarter: 2017Q2

REPORT INFORMATION
  Report Type: Spontaneous
  Country: JP (occurrence: JP)
  Receive Date: 20170322
  Receipt Date: 20170403
  Transmission Date: 20170830
  Serious: Yes (Other)
  Sender: FDA-Public Use
  Company Number: JP-GLAXOSMITHKLINE-JP2017JPN022737

PATIENT
  Age: 8 Year
  Sex: Male

DRUGS (1)
  1. RELENZA [Suspect]
     Active Substance: ZANAMIVIR
     Indication: INFLUENZA
     Dosage: UNK, BID
     Route: 055
     Dates: start: 20170208, end: 20170212

REACTIONS (10)
  - Fear [Unknown]
  - Crying [Recovered/Resolved]
  - Abnormal behaviour [Recovered/Resolved]
  - Pyrexia [Recovered/Resolved]
  - Conjunctival hyperaemia [Unknown]
  - Hallucination, visual [Recovered/Resolved]
  - Brain oedema [Unknown]
  - Gastrointestinal disorder [Unknown]
  - Dark circles under eyes [Unknown]
  - Tongue discolouration [Unknown]

NARRATIVE: CASE EVENT DATE: 20170208
